FAERS Safety Report 17097076 (Version 3)
Quarter: 2020Q1

REPORT INFORMATION
  Report Type: Report from Study
  Country: None (occurrence: US)
  Receive Date: 20191202
  Receipt Date: 20200131
  Transmission Date: 20200409
  Serious: Yes (Hospitalization)
  Sender: FDA-Public Use
  Company Number: US-INSMED, INC.-US-INS-19-00397

PATIENT
  Sex: Female
  Weight: 54.4 kg

DRUGS (2)
  1. ARIKAYCE [Suspect]
     Active Substance: AMIKACIN
     Indication: MYCOBACTERIUM AVIUM COMPLEX INFECTION
     Route: 055
     Dates: start: 20190129, end: 201910
  2. LAMIRA NEBULIZER SYSTEM [Suspect]
     Active Substance: DEVICE

REACTIONS (5)
  - Aphonia [Unknown]
  - Haemoptysis [Unknown]
  - Dyspnoea [Unknown]
  - Hospitalisation [Unknown]
  - Vomiting [Unknown]

NARRATIVE: CASE EVENT DATE: 2019
